FAERS Safety Report 14301402 (Version 1)
Quarter: 2017Q4

REPORT INFORMATION
  Report Type: Spontaneous
  Country: US (occurrence: US)
  Receive Date: 20171218
  Receipt Date: 20171218
  Transmission Date: 20180321
  Serious: No
  Sender: FDA-Public Use
  Company Number: None

PATIENT
  Age: 15 Year
  Sex: Male
  Weight: 85.5 kg

DRUGS (3)
  1. VYVANSE [Suspect]
     Active Substance: LISDEXAMFETAMINE DIMESYLATE
     Indication: ATTENTION DEFICIT/HYPERACTIVITY DISORDER
     Dosage: ?          QUANTITY:7 CAPSULE(S);?
     Route: 048
     Dates: start: 20171207, end: 20171218
  2. LORATADINE. [Concomitant]
     Active Substance: LORATADINE
  3. CYROHEPTADINE [Concomitant]

REACTIONS (3)
  - Feeling abnormal [None]
  - Drug ineffective [None]
  - Product physical issue [None]

NARRATIVE: CASE EVENT DATE: 20171207
